FAERS Safety Report 5246650-4 (Version None)
Quarter: 2007Q1

REPORT INFORMATION
  Report Type: 
  Country: None (occurrence: None)
  Receive Date: 20070216
  Receipt Date: 20070209
  Transmission Date: 20070707
  Serious: Yes (Death)
  Sender: FDA-Public Use
  Company Number: 2007-154311-NL

PATIENT
  Age: 52 Year
  Sex: Female

DRUGS (7)
  1. MIRTAZAPINE [Suspect]
     Indication: DEPRESSION
  2. MIRTAZAPINE [Suspect]
     Indication: SCHIZOPHRENIA
  3. DESIPRAMINE HCL [Suspect]
  4. ZIPRASIDONE HCL [Concomitant]
  5. LEVOTHYROXINE SODIUM [Concomitant]
  6. LORAZEPAM [Concomitant]
  7. METHAMPHETAMINE HYDROCHLORIDE [Concomitant]

REACTIONS (8)
  - ACUTE PULMONARY OEDEMA [None]
  - CALCINOSIS [None]
  - DRUG TOXICITY [None]
  - HYPERTENSIVE HEART DISEASE [None]
  - PULMONARY CONGESTION [None]
  - SUICIDAL IDEATION [None]
  - SUICIDE ATTEMPT [None]
  - THYROID NEOPLASM [None]
